FAERS Safety Report 8308615-5 (Version None)
Quarter: 2012Q2

REPORT INFORMATION
  Report Type: 
  Country: None (occurrence: None)
  Receive Date: 20120421
  Receipt Date: 20120421
  Transmission Date: 20120825
  Serious: No
  Sender: FDA-Public Use
  Company Number: None

PATIENT
  Sex: Female
  Weight: 77.1115 kg

DRUGS (1)
  1. FORTEO [Suspect]
     Indication: OSTEOPOROSIS
     Dosage: 20MCG DAILY SC
     Route: 058
     Dates: start: 20110804, end: 20120418

REACTIONS (6)
  - BONE PAIN [None]
  - EYELID DISORDER [None]
  - ERYTHEMA [None]
  - SWELLING [None]
  - WHEELCHAIR USER [None]
  - EYE DISORDER [None]
